FAERS Safety Report 5216615-7 (Version None)
Quarter: 2007Q1

REPORT INFORMATION
  Report Type: 
  Country: None (occurrence: None)
  Receive Date: 20061130
  Receipt Date: 20060815
  Transmission Date: 20070707
  Serious: Yes (Hospitalization)
  Sender: FDA-Public Use
  Company Number: US200608002163

PATIENT
  Sex: Female
  Weight: 57.6 kg

DRUGS (4)
  1. ZYPREXA [Suspect]
     Dosage: 2.5 MG,
     Dates: start: 20021001
  2. PAROXETINE HCL [Concomitant]
  3. PREDNISOLONE [Concomitant]
  4. HYDROCHLORIDE (HYDROCHLOROTHIAZIDE) [Concomitant]

REACTIONS (3)
  - CARDIAC FAILURE CONGESTIVE [None]
  - CEREBROVASCULAR ACCIDENT [None]
  - DIABETES MELLITUS [None]
